FAERS Safety Report 8322590-9 (Version None)
Quarter: 2012Q2

REPORT INFORMATION
  Report Type: 
  Country: None (occurrence: None)
  Receive Date: 20120430
  Receipt Date: 20120420
  Transmission Date: 20120825
  Serious: Yes (Hospitalization, Congenital Anomaly, Other)
  Sender: FDA-Public Use
  Company Number: DE-UCBSA-055938

PATIENT
  Sex: Male
  Weight: 0.99 kg

DRUGS (4)
  1. AMPICILLIN AND SULBACTAM [Concomitant]
     Indication: ANTIBIOTIC PROPHYLAXIS
     Route: 064
     Dates: start: 20100510, end: 20100514
  2. KEPPRA [Suspect]
     Indication: EPILEPSY
     Route: 064
     Dates: start: 20091201, end: 20100619
  3. FOLIO FORTE [Concomitant]
     Indication: NEURAL TUBE DEFECT
     Dosage: DAILY DOSE:0.8 MG
     Route: 064
     Dates: start: 20091201, end: 20100619
  4. FUNGIZID -RATIOPHARM VAGINALTABLETTEN [Concomitant]
     Indication: VULVOVAGINAL MYCOTIC INFECTION
     Route: 064
     Dates: start: 20100512, end: 20100516

REACTIONS (12)
  - RENAL APLASIA [None]
  - HYPERBILIRUBINAEMIA [None]
  - RENAL IMPAIRMENT NEONATAL [None]
  - CONGENITAL CYSTIC KIDNEY DISEASE [None]
  - ANAEMIA [None]
  - FEEDING DISORDER [None]
  - FOETAL EXPOSURE DURING PREGNANCY [None]
  - RESPIRATORY DISTRESS [None]
  - PATENT DUCTUS ARTERIOSUS [None]
  - BRADYCARDIA [None]
  - PREMATURE BABY [None]
  - PNEUMONIA [None]
